FAERS Safety Report 14664809 (Version 1)
Quarter: 2018Q1

REPORT INFORMATION
  Report Type: Spontaneous
  Country: US (occurrence: US)
  Receive Date: 20180319
  Receipt Date: 20180319
  Transmission Date: 20180509
  Serious: Yes (Life-Threatening, Disabling, Other)
  Sender: FDA-Public Use
  Company Number: None

PATIENT
  Age: 43 Year
  Sex: Female
  Weight: 46.35 kg

DRUGS (9)
  1. METFORMIN [Concomitant]
     Active Substance: METFORMIN HYDROCHLORIDE
  2. POTASSIUM [Concomitant]
     Active Substance: POTASSIUM
  3. DILAUDID [Concomitant]
     Active Substance: HYDROMORPHONE HYDROCHLORIDE
  4. ATENOLOL-HCTZ [Concomitant]
  5. WELLBUTRIN [Concomitant]
     Active Substance: BUPROPION HYDROCHLORIDE
  6. OXYCODONE AND ACETAMINOPHEN [Suspect]
     Active Substance: ACETAMINOPHEN\OXYCODONE HYDROCHLORIDE
     Indication: PAIN
     Dosage: ?          QUANTITY:1 TABLET(S);?
     Route: 048
     Dates: start: 20180306, end: 20180314
  7. TRENTAL ER [Concomitant]
  8. BIOTIN [Concomitant]
     Active Substance: BIOTIN
  9. CYCLOBENZAPRINE. [Concomitant]
     Active Substance: CYCLOBENZAPRINE

REACTIONS (17)
  - Anger [None]
  - Physical assault [None]
  - Discoloured vomit [None]
  - Screaming [None]
  - Crying [None]
  - Diarrhoea [None]
  - Anxiety [None]
  - Vomiting [None]
  - Agitation [None]
  - Product tampering [None]
  - Abdominal discomfort [None]
  - Hot flush [None]
  - Sneezing [None]
  - Pain [None]
  - Product substitution issue [None]
  - Hyperhidrosis [None]
  - Withdrawal syndrome [None]

NARRATIVE: CASE EVENT DATE: 20180306
